FAERS Safety Report 4283135-6 (Version None)
Quarter: 2004Q1

REPORT INFORMATION
  Report Type: 
  Country: None (occurrence: None)
  Receive Date: 20040120
  Receipt Date: 20040105
  Transmission Date: 20041129
  Serious: Yes (Other)
  Sender: FDA-Public Use
  Company Number: 601026

PATIENT
  Age: 49 Year
  Sex: 0

DRUGS (1)
  1. HUMAN ALBUMIN GRIFOLS 20% [Suspect]
     Indication: TRANSFUSION REACTION
     Dosage: 250 ML; UNK; INTRAVENOUS
     Route: 042
     Dates: start: 19981012, end: 19981210

REACTIONS (1)
  - HEPATITIS C POSITIVE [None]
